FAERS Safety Report 5457766-1 (Version None)
Quarter: 2007Q3

REPORT INFORMATION
  Report Type: 
  Country: None (occurrence: None)
  Receive Date: 20070918
  Receipt Date: 20070906
  Transmission Date: 20080115
  Serious: Yes (Hospitalization, Other)
  Sender: FDA-Public Use
  Company Number: DK-PFIZER INC-2007075108

PATIENT
  Age: 41 Year
  Sex: Male

DRUGS (1)
  1. VIAGRA [Suspect]
     Indication: ERECTILE DYSFUNCTION
     Route: 048

REACTIONS (6)
  - BLOOD CREATINE PHOSPHOKINASE MB INCREASED [None]
  - CARDIAC HYPERTROPHY [None]
  - RESTRICTIVE CARDIOMYOPATHY [None]
  - SYNCOPE [None]
  - TROPONIN T INCREASED [None]
  - VENTRICULAR TACHYCARDIA [None]
